FAERS Safety Report 8763908 (Version 2)
Quarter: 2013Q3

REPORT INFORMATION
  Report Type: Report from Study
  Country: NL (occurrence: NL)
  Receive Date: 20120827
  Receipt Date: 20130730
  Transmission Date: 20140515
  Serious: Yes (Other)
  Sender: FDA-Public Use
  Company Number: NL-ELI_LILLY_AND_COMPANY-NL201208007150

PATIENT
  Age: 68 Year
  Sex: Female
  Weight: 57 kg

DRUGS (3)
  1. TERIPARATIDE [Suspect]
     Indication: OSTEOPOROSIS
     Dosage: 20 UG, QD
     Route: 058
     Dates: start: 20110210
  2. LORAZEPAM [Concomitant]
     Indication: NERVOUSNESS
     Dosage: 10 MG, BID
     Route: 048
  3. FENTANYL [Concomitant]
     Indication: PAIN
     Dosage: 50 DF, OTHER
     Route: 062

REACTIONS (5)
  - Thrombosis [Not Recovered/Not Resolved]
  - Oesophageal stenosis [Unknown]
  - Pain [Not Recovered/Not Resolved]
  - Paraesthesia [Not Recovered/Not Resolved]
  - Malnutrition [Unknown]
